FAERS Safety Report 16678467 (Version 1)
Quarter: 2019Q3

REPORT INFORMATION
  Report Type: Spontaneous
  Country: US (occurrence: US)
  Receive Date: 20190807
  Receipt Date: 20190807
  Transmission Date: 20191004
  Serious: No
  Sender: FDA-Public Use
  Company Number: US-PFIZER INC-2019337905

PATIENT
  Sex: Male

DRUGS (2)
  1. PRAVASTATIN. [Interacting]
     Active Substance: PRAVASTATIN
     Dosage: 10 MG, UNK
  2. TAFAMIDIS MEGLUMINE [Suspect]
     Active Substance: TAFAMIDIS MEGLUMINE
     Dosage: 80 MG, UNK

REACTIONS (7)
  - Chills [Recovered/Resolved]
  - Malaise [Recovered/Resolved]
  - Temperature intolerance [Recovered/Resolved]
  - Night sweats [Recovered/Resolved]
  - Drug interaction [Recovered/Resolved]
  - Tremor [Recovered/Resolved]
  - Fatigue [Recovered/Resolved]
